FAERS Safety Report 6218968-X (Version None)
Quarter: 2009Q2

REPORT INFORMATION
  Report Type: 
  Country: None (occurrence: None)
  Receive Date: 20090608
  Receipt Date: 20090526
  Transmission Date: 20091009
  Serious: Yes (Other)
  Sender: FDA-Public Use
  Company Number: PHHY2009GB21371

PATIENT
  Sex: Male
  Weight: 106 kg

DRUGS (5)
  1. CLOZAPINE [Suspect]
     Indication: SCHIZOPHRENIA
     Dosage: 300 MG, QHS
     Route: 048
     Dates: start: 20040101
  2. AMISULPRIDE [Concomitant]
     Dosage: 400 MG, NOCTE
  3. FLUVOXAMINE MALEATE [Concomitant]
     Indication: ANTIPSYCHOTIC DRUG LEVEL INCREASED
     Dosage: 100 MG, NOCTE
  4. ATROPINE [Concomitant]
     Indication: SALIVARY HYPERSECRETION
  5. DIAMICRON MR [Concomitant]
     Dosage: 30 MG, MANE

REACTIONS (8)
  - ACTIVITIES OF DAILY LIVING IMPAIRED [None]
  - DELUSION [None]
  - DISSOCIATION [None]
  - DRUG INEFFECTIVE [None]
  - ENURESIS [None]
  - RESTLESSNESS [None]
  - SALIVARY HYPERSECRETION [None]
  - SPEECH DISORDER [None]
